FAERS Safety Report 5819584-1 (Version None)
Quarter: 2008Q3

REPORT INFORMATION
  Report Type: 
  Country: None (occurrence: None)
  Receive Date: 20080723
  Receipt Date: 20080715
  Transmission Date: 20090109
  Serious: Yes (Life-Threatening, Hospitalization)
  Sender: FDA-Public Use
  Company Number: FR-WYE-H05171908

PATIENT
  Sex: Male

DRUGS (7)
  1. CORDARONE [Suspect]
     Indication: ATRIAL FIBRILLATION
     Route: 048
     Dates: start: 20080329, end: 20080329
  2. CORDARONE [Interacting]
     Route: 048
     Dates: start: 20080330, end: 20080330
  3. CORDARONE [Interacting]
     Route: 048
     Dates: start: 20080401, end: 20080402
  4. CORDARONE [Interacting]
     Route: 048
     Dates: start: 20060406, end: 20060406
  5. ALDACTONE [Concomitant]
     Indication: ISCHAEMIC CARDIOMYOPATHY
     Route: 048
     Dates: start: 20060401, end: 20060403
  6. PREVISCAN [Concomitant]
     Indication: PROPHYLAXIS
     Dosage: UNSPECIFIED
     Route: 048
  7. DIGOXIN [Interacting]
     Indication: ATRIAL FIBRILLATION
     Route: 048
     Dates: start: 20060401, end: 20060406

REACTIONS (5)
  - ATRIOVENTRICULAR BLOCK COMPLETE [None]
  - BRADYCARDIA [None]
  - CARDIOGENIC SHOCK [None]
  - DRUG INTERACTION [None]
  - OVERDOSE [None]
